FAERS Safety Report 5631577-6 (Version None)
Quarter: 2008Q1

REPORT INFORMATION
  Report Type: 
  Country: None (occurrence: None)
  Receive Date: 20080215
  Receipt Date: 20080201
  Transmission Date: 20080703
  Serious: Yes (Other)
  Sender: FDA-Public Use
  Company Number: FABR-1000067

PATIENT
  Age: 50 Year
  Sex: Female

DRUGS (4)
  1. FABRAZYME [Suspect]
     Indication: FABRY'S DISEASE
     Dosage: 80 MG, Q2W, INTRAVENOUS
     Route: 042
     Dates: start: 20070621
  2. FABRAZYME [Suspect]
  3. ZOLOFT [Concomitant]
  4. PROZAC [Concomitant]

REACTIONS (2)
  - INSOMNIA [None]
  - SUICIDE ATTEMPT [None]
